FAERS Safety Report 7928582-3 (Version None)
Quarter: 2011Q4

REPORT INFORMATION
  Report Type: 
  Country: None (occurrence: None)
  Receive Date: 20111118
  Receipt Date: 20111110
  Transmission Date: 20120403
  Serious: Yes (Hospitalization)
  Sender: FDA-Public Use
  Company Number: BE-VERTEX PHARMACEUTICALS INC.-AE-2011-003540

PATIENT
  Sex: Male
  Weight: 75 kg

DRUGS (3)
  1. RIBAVIRIN [Concomitant]
     Indication: HEPATITIS C
     Route: 048
  2. VX-950 [Suspect]
     Indication: HEPATITIS C
     Route: 048
  3. PEGINTERFERON ALFA [Concomitant]
     Indication: HEPATITIS C

REACTIONS (1)
  - DYSPNOEA [None]
